FAERS Safety Report 5620260-9 (Version None)
Quarter: 2008Q1

REPORT INFORMATION
  Report Type: 
  Country: None (occurrence: None)
  Receive Date: 20080208
  Receipt Date: 20080205
  Transmission Date: 20080703
  Serious: Yes (Hospitalization)
  Sender: FDA-Public Use
  Company Number: B0506353A

PATIENT
  Age: 89 Year
  Sex: Female

DRUGS (7)
  1. VALTREX [Suspect]
     Indication: HERPES VIRUS INFECTION
     Dosage: 1000MG THREE TIMES PER DAY
     Route: 048
     Dates: start: 20080129, end: 20080130
  2. BLOPRESS [Concomitant]
     Route: 048
  3. TORSEMIDE [Concomitant]
     Route: 048
  4. GLYBURIDE [Concomitant]
     Route: 048
  5. ASPIRIN [Concomitant]
     Route: 048
  6. MECOBALAMIN [Concomitant]
     Route: 048
  7. RISEDRONATE SODIUM [Concomitant]
     Route: 048

REACTIONS (4)
  - ALTERED STATE OF CONSCIOUSNESS [None]
  - GAIT DISTURBANCE [None]
  - RENAL FAILURE ACUTE [None]
  - SPEECH DISORDER [None]
